FAERS Safety Report 15980156 (Version 1)
Quarter: 2019Q1

REPORT INFORMATION
  Report Type: Spontaneous
  Country: GB (occurrence: GB)
  Receive Date: 20190219
  Receipt Date: 20190219
  Transmission Date: 20190418
  Serious: Yes (Other)
  Sender: FDA-Public Use
  Company Number: GB-SA-2019SA032196

PATIENT
  Sex: Male

DRUGS (2)
  1. RIFADIN [Suspect]
     Active Substance: RIFAMPIN
     Indication: LOCALISED INFECTION
     Dosage: UNK
  2. OMEPRAZOLE. [Concomitant]
     Active Substance: OMEPRAZOLE
     Dosage: UNK

REACTIONS (3)
  - Ulcer [Unknown]
  - Osteomyelitis [Unknown]
  - Dyspepsia [Recovered/Resolved]

NARRATIVE: CASE EVENT DATE: 201901
